FAERS Safety Report 24754716 (Version 1)
Quarter: 2024Q4

REPORT INFORMATION
  Report Type: Report from Study
  Country: US (occurrence: US)
  Receive Date: 20241219
  Receipt Date: 20241219
  Transmission Date: 20250114
  Serious: Yes (Hospitalization)
  Sender: AEGERION
  Company Number: US-AMRYT PHARMACEUTICALS DAC-AEGR007647

PATIENT
  Age: 15 Year
  Sex: Male
  Weight: 67.687 kg

DRUGS (1)
  1. FILSUVEZ [Suspect]
     Active Substance: BIRCH TRITERPENES
     Indication: Epidermolysis bullosa
     Dosage: 10% W/W GEL 23.4G, APPLY A 1 MM LAYER TO AFFECTED WOUND SURFACE(S) AT EACH DRESSING CHANGE UNTIL WOU
     Route: 061
     Dates: start: 20241031

REACTIONS (1)
  - Oesophageal disorder [Recovering/Resolving]

NARRATIVE: CASE EVENT DATE: 20241216
